FAERS Safety Report 17854826 (Version 1)
Quarter: 2020Q2

REPORT INFORMATION
  Report Type: Spontaneous
  Country: US (occurrence: US)
  Receive Date: 20200603
  Receipt Date: 20200603
  Transmission Date: 20200714
  Serious: No
  Sender: FDA-Public Use
  Company Number: US-PFIZER INC-2020215397

PATIENT
  Sex: Female

DRUGS (4)
  1. CLONIDINE. [Suspect]
     Active Substance: CLONIDINE
     Dosage: UNK, 2X/DAY
  2. VITAMIN D 2000 [Concomitant]
     Active Substance: VITAMIN D NOS
     Dosage: 100000 IU, WEEKLY(100,000UNITS OF VITAMIN D PER WEEK)
  3. CALAN SR [Suspect]
     Active Substance: VERAPAMIL HYDROCHLORIDE
     Indication: HYPERTENSION
     Dosage: 360 MG, DAILY
  4. CLONIDINE. [Suspect]
     Active Substance: CLONIDINE
     Dosage: UNK, 3X/DAY

REACTIONS (1)
  - Heart rate decreased [Unknown]
